FAERS Safety Report 8778411 (Version 1)
Quarter: 2012Q4

REPORT INFORMATION
  Report Type: 
  Country: CN (occurrence: CN)
  Receive Date: 20120912
  Receipt Date: 20120912
  Transmission Date: 20130627
  Serious: Yes (Other)
  Sender: FDA-Public Use
  Company Number: CN-ABBOTT-12P-035-0978810-00

PATIENT
  Age: 50 Year

DRUGS (1)
  1. SODIUM VALPROATE [Suspect]
     Indication: EPILEPSY
     Route: 045
     Dates: start: 20111205, end: 20111215

REACTIONS (2)
  - Hepatocellular injury [Recovering/Resolving]
  - Alanine aminotransferase increased [Unknown]
